FAERS Safety Report 5808414-X (Version None)
Quarter: 2008Q3

REPORT INFORMATION
  Report Type: 
  Country: None (occurrence: None)
  Receive Date: 20080714
  Receipt Date: 20080708
  Transmission Date: 20090109
  Serious: Yes (Life-Threatening, Hospitalization, Other)
  Sender: FDA-Public Use
  Company Number: PHHY2008BR13575

PATIENT
  Age: 11 Year
  Sex: Male

DRUGS (1)
  1. RITALIN [Suspect]
     Indication: ATTENTION DEFICIT/HYPERACTIVITY DISORDER
     Dosage: UNK
     Route: 048
     Dates: start: 20050101, end: 20070706

REACTIONS (10)
  - ANOREXIA [None]
  - CARDIO-RESPIRATORY ARREST [None]
  - CEREBRAL DISORDER [None]
  - GASTROINTESTINAL TUBE INSERTION [None]
  - HEADACHE [None]
  - MOTOR DYSFUNCTION [None]
  - NAUSEA [None]
  - PULSE ABSENT [None]
  - RESUSCITATION [None]
  - TRACHEOSTOMY [None]
